FAERS Safety Report 4888300-2 (Version None)
Quarter: 2006Q1

REPORT INFORMATION
  Report Type: 
  Country: None (occurrence: None)
  Receive Date: 20060123
  Receipt Date: 20060119
  Transmission Date: 20060701
  Serious: Yes (Hospitalization, Other)
  Sender: FDA-Public Use
  Company Number: CA-GLAXOSMITHKLINE-A0590158A

PATIENT
  Age: 65 Year
  Sex: Male

DRUGS (3)
  1. FONDAPARINUX SODIUM [Suspect]
     Indication: MYOCARDIAL INFARCTION
     Dosage: 2.5MG PER DAY
     Route: 058
     Dates: start: 20050110
  2. ASPIRIN [Concomitant]
  3. HEPARIN [Concomitant]

REACTIONS (4)
  - ARTERY DISSECTION [None]
  - HAEMOGLOBIN DECREASED [None]
  - POST PROCEDURAL HAEMORRHAGE [None]
  - PROCEDURAL COMPLICATION [None]
